FAERS Safety Report 6149197-6 (Version None)
Quarter: 2009Q2

REPORT INFORMATION
  Report Type: 
  Country: None (occurrence: None)
  Receive Date: 20090406
  Receipt Date: 20090406
  Transmission Date: 20091009
  Serious: Yes (Life-Threatening, Hospitalization)
  Sender: FDA-Public Use
  Company Number: None

PATIENT
  Age: 46 Year
  Sex: Female
  Weight: 62.5964 kg

DRUGS (2)
  1. SOMA [Suspect]
     Indication: INFLAMMATION
     Dosage: 3 A DAY IM
     Route: 030
     Dates: start: 20081123, end: 20081230
  2. SOMA [Suspect]
     Indication: PAIN
     Dosage: 3 A DAY IM
     Route: 030
     Dates: start: 20081123, end: 20081230

REACTIONS (2)
  - OVERDOSE [None]
  - SOMNOLENCE [None]
